FAERS Safety Report 13735742 (Version 1)
Quarter: 2017Q3

REPORT INFORMATION
  Report Type: Spontaneous
  Country: US (occurrence: US)
  Receive Date: 20170708
  Receipt Date: 20170708
  Transmission Date: 20171127
  Serious: Yes (Hospitalization, Disabling)
  Sender: FDA-Public Use
  Company Number: None

PATIENT
  Age: 50 Year
  Sex: Female

DRUGS (1)
  1. PRALUENT [Suspect]
     Active Substance: ALIROCUMAB
     Indication: TYPE IIA HYPERLIPIDAEMIA
     Dosage: ?          OTHER STRENGTH:MG/ML;QUANTITY:1 INJECTION(S);OTHER FREQUENCY:EVERY 2 WEEKS;?
     Route: 030

REACTIONS (7)
  - Gastritis [None]
  - Vomiting [None]
  - Nausea [None]
  - Decreased appetite [None]
  - Anal incontinence [None]
  - Intestinal obstruction [None]
  - Weight decreased [None]

NARRATIVE: CASE EVENT DATE: 20170705
